FAERS Safety Report 20809654 (Version 2)
Quarter: 2022Q3

REPORT INFORMATION
  Report Type: Spontaneous
  Country: US (occurrence: US)
  Receive Date: 20220510
  Receipt Date: 20220726
  Transmission Date: 20221027
  Serious: No
  Sender: FDA-Public Use
  Company Number: US-OYSTER POINT PHARMA, INC.-2022OYS00257

PATIENT
  Sex: Female

DRUGS (4)
  1. TYRVAYA [Suspect]
     Active Substance: VARENICLINE TARTRATE
     Indication: Dry eye
     Dosage: 1 SPRAY IN EACH NOSTRIL,, 2X/DAY (12 HOURS APART)
     Route: 045
     Dates: start: 20220314, end: 2022
  2. TYRVAYA [Suspect]
     Active Substance: VARENICLINE TARTRATE
     Dosage: 1 DOSAGE UNITS, 1X/DAY
     Route: 045
     Dates: start: 2022
  3. TYRVAYA [Suspect]
     Active Substance: VARENICLINE TARTRATE
     Dosage: 1 DOSAGE UNITS, EVERY 48 HOURS
     Route: 045
     Dates: start: 2022
  4. UNSPECIFIED OIL FOR EYES [Concomitant]

REACTIONS (5)
  - Upper-airway cough syndrome [Unknown]
  - Therapeutic product effect variable [Unknown]
  - Throat irritation [Unknown]
  - Product delivery mechanism issue [Unknown]
  - Intentional product misuse [Unknown]

NARRATIVE: CASE EVENT DATE: 20220101
